FAERS Safety Report 5792218-0 (Version None)
Quarter: 2008Q2

REPORT INFORMATION
  Report Type: 
  Country: None (occurrence: None)
  Receive Date: 20080626
  Receipt Date: 20080617
  Transmission Date: 20081010
  Serious: No
  Sender: FDA-Public Use
  Company Number: US-BOEHRINGER INGELHEIM GMBH, GERMANY-2008-BP-09513BP

PATIENT
  Age: 78 Year
  Sex: Female

DRUGS (6)
  1. MIRAPEX [Suspect]
     Indication: RESTLESS LEGS SYNDROME
     Route: 048
     Dates: start: 20080505
  2. EVISTA [Concomitant]
     Indication: OSTEOPOROSIS
  3. VYTORIN [Concomitant]
     Indication: BLOOD CHOLESTEROL INCREASED
  4. SYNTHROID [Concomitant]
     Indication: HYPOTHYROIDISM
  5. SYMBICORT [Concomitant]
     Indication: ASTHMA
  6. MICARDIS [Concomitant]
     Indication: HYPERTENSION
     Dates: start: 20080301

REACTIONS (1)
  - THERAPEUTIC RESPONSE DECREASED [None]
